FAERS Safety Report 9753862 (Version 3)
Quarter: 2015Q3

REPORT INFORMATION
  Report Type: Spontaneous
  Country: US (occurrence: US)
  Receive Date: 20131213
  Receipt Date: 20150805
  Transmission Date: 20151125
  Serious: No
  Sender: FDA-Public Use
  Company Number: US-GILEAD-2010-0027081

PATIENT
  Age: 67 Year
  Sex: Female
  Weight: 90.72 kg

DRUGS (20)
  1. NITROGLYCERIN. [Concomitant]
     Active Substance: NITROGLYCERIN
  2. DARVOCET [Concomitant]
     Active Substance: ACETAMINOPHEN\PROPOXYPHENE HYDROCHLORIDE
  3. LETAIRIS [Suspect]
     Active Substance: AMBRISENTAN
     Indication: PULMONARY ARTERIAL HYPERTENSION
     Route: 048
     Dates: start: 20091030
  4. SIMVASTATIN. [Concomitant]
     Active Substance: SIMVASTATIN
  5. GAS-X [Concomitant]
     Active Substance: DIMETHICONE
  6. ASPIRIN. [Concomitant]
     Active Substance: ASPIRIN
  7. TEMAZEPAM. [Concomitant]
     Active Substance: TEMAZEPAM
  8. AMLODIPINE [Concomitant]
     Active Substance: AMLODIPINE BESYLATE
  9. PLAVIX [Concomitant]
     Active Substance: CLOPIDOGREL BISULFATE
  10. HYDRALAZINE [Concomitant]
     Active Substance: HYDRALAZINE HYDROCHLORIDE
  11. ISOSORBIDE. [Concomitant]
     Active Substance: ISOSORBIDE
  12. GLIPIZIDE. [Concomitant]
     Active Substance: GLIPIZIDE
  13. GABAPENTIN. [Concomitant]
     Active Substance: GABAPENTIN
  14. METHOCARBAMOL. [Concomitant]
     Active Substance: METHOCARBAMOL
  15. TORSEMIDE. [Concomitant]
     Active Substance: TORSEMIDE
  16. BENAZEPRIL [Concomitant]
     Active Substance: BENAZEPRIL HYDROCHLORIDE
  17. VITAMIN D [Concomitant]
     Active Substance: CHOLECALCIFEROL
  18. COLCHICINE. [Concomitant]
     Active Substance: COLCHICINE
  19. MULTIVITAMIN [Concomitant]
     Active Substance: VITAMINS
  20. FISH OIL [Concomitant]
     Active Substance: FISH OIL

REACTIONS (4)
  - Palpitations [Unknown]
  - Dyspnoea [Unknown]
  - Increased tendency to bruise [Unknown]
  - Cold sweat [Unknown]
